FAERS Safety Report 12733799 (Version 5)
Quarter: 2016Q4

REPORT INFORMATION
  Report Type: Report from Study
  Country: US (occurrence: US)
  Receive Date: 20160912
  Receipt Date: 20161227
  Transmission Date: 20170207
  Serious: Yes (Life-Threatening, Hospitalization)
  Sender: FDA-Public Use
  Company Number: US-ROCHE-1815891

PATIENT
  Age: 51 Year
  Sex: Female
  Weight: 44.9 kg

DRUGS (32)
  1. NORCO [Concomitant]
     Active Substance: ACETAMINOPHEN\HYDROCODONE BITARTRATE
     Indication: ABDOMINAL PAIN
     Dosage: 5-325 MG
     Route: 048
     Dates: start: 20160802
  2. ENOXAPARIN [Concomitant]
     Active Substance: ENOXAPARIN
     Indication: PROPHYLAXIS
     Route: 042
     Dates: start: 20160825, end: 20160826
  3. VFEND [Concomitant]
     Active Substance: VORICONAZOLE
     Indication: FUNGAL INFECTION
     Route: 048
     Dates: start: 20160822, end: 20160825
  4. ACETAMINOPHEN. [Concomitant]
     Active Substance: ACETAMINOPHEN
     Indication: PAIN
     Route: 048
     Dates: start: 20160720
  5. PERI-COLACE (UNITED STATES) [Concomitant]
     Indication: CONSTIPATION
     Route: 048
     Dates: start: 20151002
  6. DEXTROSE. [Concomitant]
     Active Substance: DEXTROSE
     Route: 042
     Dates: start: 20160819, end: 20160826
  7. SODIUM CHLORIDE. [Concomitant]
     Active Substance: SODIUM CHLORIDE
     Dosage: 1 UNIT
     Route: 042
     Dates: start: 20160817, end: 20160819
  8. ZOFRAN [Concomitant]
     Active Substance: ONDANSETRON HYDROCHLORIDE
     Indication: VOMITING
     Route: 042
     Dates: start: 20160817, end: 20160826
  9. LACTATED RINGERS [Concomitant]
     Active Substance: CALCIUM CHLORIDE\POTASSIUM CHLORIDE\SODIUM CHLORIDE\SODIUM LACTATE
     Indication: BLOOD ELECTROLYTES DECREASED
     Route: 040
     Dates: start: 20160817, end: 20160817
  10. VERSED [Concomitant]
     Active Substance: MIDAZOLAM HYDROCHLORIDE
     Indication: RESPIRATORY FAILURE
     Route: 042
     Dates: start: 20160819, end: 20160819
  11. VFEND [Concomitant]
     Active Substance: VORICONAZOLE
     Route: 048
     Dates: start: 20160819, end: 20160822
  12. ATEZOLIZUMAB [Suspect]
     Active Substance: ATEZOLIZUMAB
     Indication: OVARIAN CANCER
     Dosage: MOST RECENT DOSE: 04/AUG/2016
     Route: 042
     Dates: start: 20160804, end: 20160804
  13. BEVACIZUMAB [Suspect]
     Active Substance: BEVACIZUMAB
     Indication: OVARIAN CANCER
     Dosage: MOST RECENT DOSE: 04/AUG/2016 AT 691.5 MG
     Route: 042
     Dates: start: 20160804, end: 20160804
  14. ACETAMINOPHEN. [Concomitant]
     Active Substance: ACETAMINOPHEN
     Route: 048
     Dates: start: 20160817, end: 20160826
  15. DESYREL [Concomitant]
     Active Substance: TRAZODONE HYDROCHLORIDE
     Indication: INSOMNIA
     Route: 048
     Dates: start: 20160823, end: 20161003
  16. ENOXAPARIN [Concomitant]
     Active Substance: ENOXAPARIN
     Route: 042
     Dates: start: 20160825, end: 20160825
  17. NEUPOGEN [Concomitant]
     Active Substance: FILGRASTIM
     Indication: FEBRILE NEUTROPENIA
     Route: 042
     Dates: start: 20160820, end: 20160820
  18. HEPARIN [Concomitant]
     Active Substance: HEPARIN SODIUM
     Indication: THROMBOSIS PROPHYLAXIS
     Dosage: 500 UNITS
     Route: 042
     Dates: start: 20160825, end: 20160826
  19. K-DUR [Concomitant]
     Active Substance: POTASSIUM CHLORIDE
     Indication: BLOOD ELECTROLYTES DECREASED
     Dosage: EXTENDED RELEASE
     Route: 048
     Dates: start: 20160822, end: 20160822
  20. COMPAZINE [Concomitant]
     Active Substance: PROCHLORPERAZINE MALEATE
     Indication: VOMITING
  21. NORCO [Concomitant]
     Active Substance: ACETAMINOPHEN\HYDROCODONE BITARTRATE
     Dosage: 5-325MG
     Route: 048
     Dates: start: 20160817, end: 20160817
  22. PERI-COLACE (UNITED STATES) [Concomitant]
     Route: 048
     Dates: start: 20160817, end: 20160818
  23. MAGNESIUM SULFATE. [Concomitant]
     Active Substance: MAGNESIUM SULFATE
     Indication: BLOOD ELECTROLYTES DECREASED
     Dosage: 1 UNIT
     Route: 042
     Dates: start: 20160818, end: 20160818
  24. NEUPOGEN [Concomitant]
     Active Substance: FILGRASTIM
     Route: 042
     Dates: start: 20160820, end: 20160820
  25. LACTATED RINGERS [Concomitant]
     Active Substance: CALCIUM CHLORIDE\POTASSIUM CHLORIDE\SODIUM CHLORIDE\SODIUM LACTATE
     Route: 040
     Dates: start: 20160817, end: 20160817
  26. POTASSIUM CHLORIDE. [Concomitant]
     Active Substance: POTASSIUM CHLORIDE
     Indication: BLOOD ELECTROLYTES DECREASED
     Dosage: 20 MEQ IN WATER - 100 ML IVPB?1 UNIT
     Route: 042
     Dates: start: 20160818, end: 20160822
  27. SODIUM CHLORIDE. [Concomitant]
     Active Substance: SODIUM CHLORIDE
     Dosage: 1 UNIT; 0.5-10ML
     Route: 042
     Dates: start: 20160817, end: 20160826
  28. ZOFRAN [Concomitant]
     Active Substance: ONDANSETRON HYDROCHLORIDE
     Indication: NAUSEA
     Route: 048
     Dates: start: 20160802
  29. DOCUSATE [Concomitant]
     Active Substance: DOCUSATE
     Indication: CONSTIPATION
     Route: 048
     Dates: start: 20160818, end: 20160826
  30. HEPARIN [Concomitant]
     Active Substance: HEPARIN SODIUM
     Dosage: 5000 UNITS
     Route: 042
     Dates: start: 20160823, end: 20160825
  31. NOVOLOG [Concomitant]
     Active Substance: INSULIN ASPART
     Indication: BLOOD GLUCOSE DECREASED
     Dosage: 1 UNITS
     Route: 042
     Dates: start: 20160819, end: 20160826
  32. COMPAZINE [Concomitant]
     Active Substance: PROCHLORPERAZINE MALEATE
     Indication: NAUSEA
     Route: 042
     Dates: start: 20160817, end: 20160826

REACTIONS (3)
  - Pneumonitis [Recovered/Resolved]
  - Pancytopenia [Recovered/Resolved]
  - Systemic immune activation [Recovered/Resolved]

NARRATIVE: CASE EVENT DATE: 20160814
